FAERS Safety Report 7660162-X (Version None)
Quarter: 2011Q3

REPORT INFORMATION
  Report Type: 
  Country: None (occurrence: None)
  Receive Date: 20110805
  Receipt Date: 20110804
  Transmission Date: 20111222
  Serious: Yes (Death)
  Sender: FDA-Public Use
  Company Number: PHFR2011GB04264

PATIENT
  Sex: Male
  Weight: 101 kg

DRUGS (3)
  1. CLOZAPINE [Suspect]
     Indication: SCHIZOPHRENIA
     Dosage: 450 MG DAILY
     Route: 048
     Dates: start: 19930408
  2. SULPIRIDE [Suspect]
     Indication: SCHIZOPHRENIA
     Dosage: 600 MG, UNK
     Route: 048
  3. ESCITALOPRAM [Suspect]
     Indication: DEPRESSION
     Dosage: 20 MG, UNK
     Route: 048

REACTIONS (3)
  - RESPIRATORY FAILURE [None]
  - ORGAN FAILURE [None]
  - LUNG NEOPLASM MALIGNANT [None]
